FAERS Safety Report 4698029-1 (Version None)
Quarter: 2005Q2

REPORT INFORMATION
  Report Type: 
  Country: None (occurrence: None)
  Receive Date: 20050621
  Receipt Date: 20050610
  Transmission Date: 20051028
  Serious: Yes (Hospitalization)
  Sender: FDA-Public Use
  Company Number: 26714

PATIENT
  Age: 73 Year
  Sex: Female

DRUGS (3)
  1. FLECAINIDE ACETATE [Suspect]
     Indication: ATRIAL FIBRILLATION
     Dosage: 100 MG (100 MG,1 IN 1 DAY(S)),ORAL
     Route: 048
     Dates: start: 20050404, end: 20050517
  2. OMEPRAZOLE [Concomitant]
  3. DEDIOL [Concomitant]

REACTIONS (1)
  - VENTRICULAR FLUTTER [None]
